FAERS Safety Report 16261300 (Version 1)
Quarter: 2019Q2

REPORT INFORMATION
  Report Type: Spontaneous
  Country: DK (occurrence: DK)
  Receive Date: 20190501
  Receipt Date: 20190501
  Transmission Date: 20190711
  Serious: Yes (Death, Hospitalization)
  Sender: FDA-Public Use
  Company Number: DK-TEVA-2019-DK-1043047

PATIENT
  Age: 88 Year
  Sex: Female

DRUGS (15)
  1. TRAMADOL. [Concomitant]
     Active Substance: TRAMADOL
     Indication: PAIN
     Dosage: 50 MILLIGRAM DAILY; DOSE: + 1 IF NEEDED. STRENGTH: 50MG
     Route: 048
     Dates: start: 20181003
  2. CLARITHROMYCIN ^PCD^ [Suspect]
     Active Substance: CLARITHROMYCIN
     Indication: ERYSIPELAS
     Route: 048
     Dates: start: 20190213
  3. SIMVASTATIN ^SANDOZ^ [Suspect]
     Active Substance: SIMVASTATIN
     Indication: HYPERCHOLESTEROLAEMIA
     Dosage: STYRKE: 40 MG
     Route: 048
     Dates: start: 20140318, end: 20190307
  4. FUROSEMIDE. [Concomitant]
     Active Substance: FUROSEMIDE
     Indication: DIURETIC THERAPY
     Dosage: 160 MILLIGRAM DAILY;
     Route: 048
     Dates: start: 20190217
  5. PARACETAMOL [Concomitant]
     Active Substance: ACETAMINOPHEN
     Indication: PAIN
     Dosage: 4 GRAM DAILY;
     Route: 048
     Dates: start: 20171128
  6. COLECALCIFEROL [Concomitant]
     Active Substance: CHOLECALCIFEROL
     Indication: SUPPLEMENTATION THERAPY
     Dosage: 35 MICROGRAM DAILY; STRENGTH: 35 MICROGRAMS
     Route: 048
     Dates: start: 20190217
  7. APIXABAN [Concomitant]
     Active Substance: APIXABAN
     Indication: THROMBOSIS PROPHYLAXIS
     Dosage: 5 MILLIGRAM DAILY;
     Route: 048
     Dates: start: 20181004
  8. ZOPICLONE [Concomitant]
     Active Substance: ZOPICLONE
     Indication: INSOMNIA
     Dosage: 3.75 MILLIGRAM DAILY;
     Route: 048
     Dates: start: 20181003
  9. POTASSIUM CHLORIDE. [Concomitant]
     Active Substance: POTASSIUM CHLORIDE
     Indication: MINERAL SUPPLEMENTATION
     Dosage: 750 MILLIGRAM DAILY; STYRKE: 750MG
     Route: 048
     Dates: start: 20190221
  10. MACROGOL [Concomitant]
     Active Substance: POLYETHYLENE GLYCOLS
     Indication: CONSTIPATION
     Route: 048
     Dates: start: 20190207
  11. TERBINAFINE. [Concomitant]
     Active Substance: TERBINAFINE
     Indication: FUNGAL SKIN INFECTION
     Dosage: 1 DOSAGE FORMS DAILY;
     Route: 003
     Dates: start: 20190222
  12. AMLODIPIN ^ACTAVIS^ [Suspect]
     Active Substance: AMLODIPINE BESYLATE
     Indication: HYPERTENSION
     Dosage: 5 MILLIGRAM DAILY;
     Route: 048
     Dates: start: 2014
  13. CORDARONE [Interacting]
     Active Substance: AMIODARONE HYDROCHLORIDE
     Indication: HEART RATE IRREGULAR
     Dosage: 200 MILLIGRAM DAILY;
     Route: 048
     Dates: start: 20140406
  14. ALFACALCIDOL [Concomitant]
     Active Substance: ALFACALCIDOL
     Indication: CALCIUM METABOLISM DISORDER
     Dosage: DOSE: 1 CAPSULE ON TUESDAY, THURSDAY AND SATURDAY. STRENGTH: 0.25 MICROGRAMS
     Route: 048
     Dates: start: 20181004
  15. LACTULOSE. [Concomitant]
     Active Substance: LACTULOSE
     Indication: CONSTIPATION
     Route: 048
     Dates: start: 20190208

REACTIONS (4)
  - Myoglobin blood increased [Fatal]
  - Rhabdomyolysis [Fatal]
  - Drug interaction [Fatal]
  - Blood creatine phosphokinase increased [Fatal]

NARRATIVE: CASE EVENT DATE: 2019
